FAERS Safety Report 9710439 (Version 1)
Quarter: 2013Q4

REPORT INFORMATION
  Report Type: Spontaneous
  Country: US (occurrence: US)
  Receive Date: 20131126
  Receipt Date: 20131126
  Transmission Date: 20140711
  Serious: Yes (Other)
  Sender: FDA-Public Use
  Company Number: US-BRISTOL-MYERS SQUIBB COMPANY-18988725

PATIENT
  Age: 64 Year
  Sex: Female

DRUGS (1)
  1. BYDUREON [Suspect]
     Dosage: 2ND DOSE ON 31MAY13
     Dates: start: 20130524

REACTIONS (1)
  - Anaphylactic reaction [Recovering/Resolving]
